FAERS Safety Report 9110885 (Version 1)
Quarter: 2013Q1

REPORT INFORMATION
  Report Type: Spontaneous
  Country: US (occurrence: US)
  Receive Date: 20130219
  Receipt Date: 20130219
  Transmission Date: 20140127
  Serious: No
  Sender: FDA-Public Use
  Company Number: US-BRISTOL-MYERS SQUIBB COMPANY-16599375

PATIENT
  Age: 68 Year
  Sex: Male
  Weight: 104.31 kg

DRUGS (9)
  1. ORENCIA [Suspect]
     Indication: RHEUMATOID ARTHRITIS
     Dosage: LAST INF ON 30APR12,ABOUT 6 MONTHS,INJ
     Route: 042
  2. ALLOPURINOL [Concomitant]
  3. TRAMADOL [Concomitant]
  4. LORAZEPAM [Concomitant]
  5. LISINOPRIL [Concomitant]
  6. TAMSULOSIN [Concomitant]
  7. HYDROCHLOROTHIAZIDE [Concomitant]
  8. DARVOCET [Concomitant]
  9. MVI [Concomitant]

REACTIONS (1)
  - Neuropathy peripheral [Unknown]
